FAERS Safety Report 5758909-2 (Version None)
Quarter: 2008Q2

REPORT INFORMATION
  Report Type: 
  Country: None (occurrence: None)
  Receive Date: 20080604
  Receipt Date: 20080529
  Transmission Date: 20081010
  Serious: Yes (Other)
  Sender: FDA-Public Use
  Company Number: PHNU2008DE01934

PATIENT
  Sex: Male

DRUGS (5)
  1. RASILEZ [Suspect]
     Indication: HYPERTENSION
     Dosage: 1 DF, QD
     Route: 048
     Dates: start: 20071102, end: 20071226
  2. RASILEZ [Suspect]
     Dosage: 0.5 DF, QD
     Route: 048
     Dates: start: 20071227, end: 20080104
  3. OLMESARTAN MEDOXOMIL [Suspect]
     Indication: HYPERTENSION
     Dosage: 1 DF, QD
     Route: 048
     Dates: start: 20071102, end: 20080108
  4. SPIRONOTHIAZID [Suspect]
     Indication: HYPERTENSION
     Dosage: 0.25 DF, QD
     Route: 048
     Dates: start: 20071102, end: 20071222
  5. ENALAPRIL MALEATE [Concomitant]
     Dosage: 0.5 DF/DAY
     Route: 048
     Dates: start: 20080101

REACTIONS (15)
  - AGGRESSION [None]
  - AGITATION [None]
  - CARDIAC FLUTTER [None]
  - DEPRESSION [None]
  - HEART RATE INCREASED [None]
  - HYPERHIDROSIS [None]
  - MENTAL DISORDER [None]
  - MUSCLE TWITCHING [None]
  - NERVOUS SYSTEM DISORDER [None]
  - NERVOUSNESS [None]
  - NOCTURIA [None]
  - SLEEP DISORDER [None]
  - TREMOR [None]
  - VERTIGO [None]
  - WITHDRAWAL SYNDROME [None]
